FAERS Safety Report 4842516-X (Version None)
Quarter: 2005Q4

REPORT INFORMATION
  Report Type: 
  Country: None (occurrence: None)
  Receive Date: 20051129
  Receipt Date: 20051116
  Transmission Date: 20060501
  Serious: Yes (Hospitalization, Other)
  Sender: FDA-Public Use
  Company Number: USA0507102777

PATIENT
  Age: 64 Year
  Sex: Female
  Weight: 74.4 kg

DRUGS (3)
  1. EVISTA [Suspect]
     Indication: OSTEOPOROSIS
     Dosage: 60 MG, DAILY (1/D)
  2. ESTROGENS SOL/INJ [Concomitant]
  3. SYNTHROID [Concomitant]

REACTIONS (2)
  - SUICIDAL IDEATION [None]
  - VAGINAL PAIN [None]
